FAERS Safety Report 9207074 (Version 3)
Quarter: 2013Q2

REPORT INFORMATION
  Report Type: Spontaneous
  Country: US (occurrence: US)
  Receive Date: 20130403
  Receipt Date: 20130606
  Transmission Date: 20140414
  Serious: No
  Sender: FDA-Public Use
  Company Number: US-009507513-1303USA013857

PATIENT
  Age: 70 Year
  Sex: Female
  Weight: 115.65 kg

DRUGS (1)
  1. JANUVIA [Suspect]
     Indication: DIABETES MELLITUS
     Dosage: 100 MG, QD
     Route: 048
     Dates: start: 201203

REACTIONS (19)
  - Pancreatic cyst [Recovered/Resolved]
  - Fall [Unknown]
  - Injury [Unknown]
  - Skeletal injury [Unknown]
  - Dyspnoea [Unknown]
  - Chest pain [Unknown]
  - Pneumothorax [Unknown]
  - Pleural effusion [Unknown]
  - Rib fracture [Unknown]
  - Hepatomegaly [Unknown]
  - Atelectasis [Unknown]
  - Haemothorax [Unknown]
  - Aortic arteriosclerosis [Unknown]
  - Pulmonary mass [Unknown]
  - Liver disorder [Unknown]
  - Diverticulitis [Unknown]
  - Spinal osteoarthritis [Unknown]
  - Spinal osteoarthritis [Unknown]
  - Lumbarisation [Unknown]
